FAERS Safety Report 10019494 (Version 1)
Quarter: 2014Q1

REPORT INFORMATION
  Report Type: Spontaneous
  Country: US (occurrence: US)
  Receive Date: 20140318
  Receipt Date: 20140318
  Transmission Date: 20141002
  Serious: Yes (Hospitalization)
  Sender: FDA-Public Use
  Company Number: US-PFIZER INC-2014074670

PATIENT
  Age: 64 Year
  Sex: Female
  Weight: 75.19 kg

DRUGS (10)
  1. XALKORI [Suspect]
     Indication: LUNG CANCER METASTATIC
     Dosage: 250 MG, 2X/DAY
     Dates: start: 20131205
  2. FOLIC ACID [Concomitant]
     Dosage: 1 MG, 1X/DAY
     Route: 048
  3. ASPIRIN [Concomitant]
     Dosage: 81 MG, 1X/DAY
  4. LEVOTHYROXINE [Concomitant]
     Dosage: 50 UG, 1X/DAY
  5. CRESTOR [Concomitant]
     Dosage: 20 MG, 1X/DAY
  6. MAGNESIUM [Concomitant]
     Dosage: 400 MG, 1X/DAY
  7. SINGULAIR [Concomitant]
     Dosage: 10 MG, 1X/DAY
  8. TUDORZA PRESSAIR [Concomitant]
     Dosage: 400 UG, 2X/DAY
  9. ZOFRAN [Concomitant]
     Dosage: 8 MG, AS NEEDED
  10. COMPAZINE [Concomitant]
     Indication: NAUSEA
     Dosage: 10 MG, AS NEEDED

REACTIONS (1)
  - Cerebrovascular accident [Recovered/Resolved]
